FAERS Safety Report 16536744 (Version 4)
Quarter: 2019Q4

REPORT INFORMATION
  Report Type: Report from Study
  Country: US (occurrence: US)
  Receive Date: 20190706
  Receipt Date: 20191213
  Transmission Date: 20200122
  Serious: Yes (Life-Threatening, Other)
  Sender: FDA-Public Use
  Company Number: PHEH2019US027844

PATIENT
  Age: 22 Year
  Sex: Male
  Weight: 78 kg

DRUGS (2)
  1. KYMRIAH [Suspect]
     Active Substance: TISAGENLECLEUCEL
     Dosage: UNK, ONCE/SINGLE
     Route: 042
     Dates: start: 20190711
  2. KYMRIAH [Suspect]
     Active Substance: TISAGENLECLEUCEL
     Indication: ACUTE LYMPHOCYTIC LEUKAEMIA REFRACTORY
     Dosage: 14 ML, ONCE/SINGLE
     Route: 042
     Dates: start: 20181212, end: 20181212

REACTIONS (3)
  - B-lymphocyte count abnormal [Unknown]
  - Acute lymphocytic leukaemia recurrent [Not Recovered/Not Resolved]
  - B-cell aplasia [Unknown]

NARRATIVE: CASE EVENT DATE: 20190626
